FAERS Safety Report 9701080 (Version 4)
Quarter: 2014Q1

REPORT INFORMATION
  Report Type: Spontaneous
  Country: US (occurrence: US)
  Receive Date: 20131121
  Receipt Date: 20140107
  Transmission Date: 20141002
  Serious: Yes (Hospitalization, Other)
  Sender: FDA-Public Use
  Company Number: US-BAXTER-2013BAX045505

PATIENT
  Age: 57 Year
  Sex: Female

DRUGS (1)
  1. DIANEAL LOW CALCIUM [Suspect]
     Indication: PERITONEAL DIALYSIS
     Route: 033
     Dates: end: 201312

REACTIONS (5)
  - Gastritis [Unknown]
  - Ulcer [Unknown]
  - Dyspepsia [Unknown]
  - Fungal peritonitis [Recovering/Resolving]
  - Constipation [Unknown]
